FAERS Safety Report 14668258 (Version 1)
Quarter: 2018Q1

REPORT INFORMATION
  Report Type: Report from Study
  Country: None (occurrence: BR)
  Receive Date: 20180322
  Receipt Date: 20180322
  Transmission Date: 20180509
  Serious: Yes (Hospitalization)
  Sender: FDA-Public Use
  Company Number: BR-ABBVIE-17K-020-2186979-00

PATIENT
  Sex: Female
  Weight: 86.6 kg

DRUGS (3)
  1. HUMIRA [Suspect]
     Active Substance: ADALIMUMAB
     Indication: PSORIATIC ARTHROPATHY
     Route: 058
     Dates: start: 20140530
  2. AMYTRIL [Concomitant]
     Active Substance: AMITRIPTYLINE HYDROCHLORIDE
     Indication: DEPRESSION
  3. PACO [Concomitant]
     Active Substance: ACETAMINOPHEN\CODEINE PHOSPHATE
     Indication: PAIN

REACTIONS (5)
  - Gait disturbance [Unknown]
  - Procedural nausea [Unknown]
  - Arthralgia [Not Recovered/Not Resolved]
  - Skeletal injury [Not Recovered/Not Resolved]
  - Procedural headache [Unknown]

NARRATIVE: CASE EVENT DATE: 2016
